FAERS Safety Report 23654097 (Version 1)
Quarter: 2024Q1

REPORT INFORMATION
  Report Type: Report from Study
  Country: CO (occurrence: CO)
  Receive Date: 20240320
  Receipt Date: 20240320
  Transmission Date: 20240409
  Serious: Yes (Other)
  Sender: FDA-Public Use
  Company Number: CO-JNJFOC-20240341062

PATIENT
  Age: 64 Year
  Sex: Male
  Weight: 79 kg

DRUGS (1)
  1. SIMPONI [Suspect]
     Active Substance: GOLIMUMAB
     Indication: Ankylosing spondylitis
     Route: 058
     Dates: start: 20230126, end: 20240307

REACTIONS (2)
  - Ankylosing spondylitis [Recovering/Resolving]
  - Rash pustular [Unknown]

NARRATIVE: CASE EVENT DATE: 20240201
